FAERS Safety Report 19229185 (Version 4)
Quarter: 2021Q2

REPORT INFORMATION
  Report Type: Spontaneous
  Country: US (occurrence: US)
  Receive Date: 20210507
  Receipt Date: 20210630
  Transmission Date: 20210717
  Serious: No
  Sender: FDA-Public Use
  Company Number: NVSC2021US099521

PATIENT
  Sex: Female

DRUGS (2)
  1. ESTRADIOL. [Suspect]
     Active Substance: ESTRADIOL
     Indication: PRODUCT USED FOR UNKNOWN INDICATION
     Dosage: 0.1 MG, BIW
     Route: 065
     Dates: start: 2019, end: 202101
  2. MINIVELLE [Suspect]
     Active Substance: ESTRADIOL
     Indication: PRODUCT USED FOR UNKNOWN INDICATION
     Route: 065

REACTIONS (8)
  - Hot flush [Unknown]
  - Loss of libido [Unknown]
  - Tenderness [Unknown]
  - Breast pain [Unknown]
  - Drug ineffective [Unknown]
  - Breast cyst [Unknown]
  - Insomnia [Unknown]
  - Dermal cyst [Unknown]
